FAERS Safety Report 24027958 (Version 1)
Quarter: 2024Q2

REPORT INFORMATION
  Report Type: Other
  Country: AU (occurrence: AU)
  Receive Date: 20240628
  Receipt Date: 20240628
  Transmission Date: 20240716
  Serious: Yes (Other)
  Sender: FDA-Public Use
  Company Number: AU-LUPIN PHARMACEUTICALS INC.-2024-05472

PATIENT
  Age: 92 Year
  Sex: Male

DRUGS (1)
  1. CEPHALEXIN [Suspect]
     Active Substance: CEPHALEXIN
     Indication: Product used for unknown indication
     Dosage: UNK
     Route: 065

REACTIONS (7)
  - Oedema [Unknown]
  - Pallor [Unknown]
  - Pemphigoid [Unknown]
  - Pemphigus [Unknown]
  - Pyrexia [Unknown]
  - Rash [Unknown]
  - Stevens-Johnson syndrome [Unknown]
